FAERS Safety Report 4996711-X (Version None)
Quarter: 2006Q2

REPORT INFORMATION
  Report Type: 
  Country: None (occurrence: None)
  Receive Date: 20060509
  Receipt Date: 20041011
  Transmission Date: 20061013
  Serious: Yes (Hospitalization)
  Sender: FDA-Public Use
  Company Number: US-MERCK-0410USA01681

PATIENT
  Age: 79 Year
  Sex: Female

DRUGS (2)
  1. VIOXX [Suspect]
     Indication: ARTHRITIS
     Route: 048
     Dates: start: 20030101, end: 20040930
  2. ZOCOR [Concomitant]
     Route: 048

REACTIONS (13)
  - ADVERSE EVENT [None]
  - AUTOIMMUNE DISORDER [None]
  - BACK PAIN [None]
  - COLONIC POLYP [None]
  - CYANOSIS [None]
  - JOINT SWELLING [None]
  - METABOLIC SYNDROME [None]
  - MUSCULOSKELETAL CHEST PAIN [None]
  - MUSCULOSKELETAL DISORDER [None]
  - OEDEMA PERIPHERAL [None]
  - PARAESTHESIA [None]
  - POLYP [None]
  - SKIN DISORDER [None]
